FAERS Safety Report 8556788-1 (Version None)
Quarter: 2012Q3

REPORT INFORMATION
  Report Type: 
  Country: None (occurrence: None)
  Receive Date: 20120801
  Receipt Date: 20120717
  Transmission Date: 20120928
  Serious: Yes (Death)
  Sender: FDA-Public Use
  Company Number: US-CTI_01473_2012

PATIENT
  Age: 36 Year
  Sex: Male

DRUGS (3)
  1. ADVAIR [Concomitant]
     Dosage: DF
  2. ZOLAIR [Concomitant]
     Dosage: DF
  3. ZYFLO CR [Suspect]
     Indication: ASTHMA
     Dosage: DF
     Dates: start: 20120101, end: 20120701

REACTIONS (1)
  - DEATH [None]
